FAERS Safety Report 12167077 (Version 1)
Quarter: 2016Q1

REPORT INFORMATION
  Report Type: Spontaneous
  Country: US (occurrence: US)
  Receive Date: 20160310
  Receipt Date: 20160310
  Transmission Date: 20160526
  Serious: Yes (Hospitalization, Other)
  Sender: FDA-Public Use
  Company Number: US-AMGEN-USASP2016028429

PATIENT
  Age: 72 Year
  Sex: Female

DRUGS (1)
  1. NEULASTA [Suspect]
     Active Substance: PEGFILGRASTIM
     Indication: PRODUCT USED FOR UNKNOWN INDICATION
     Dosage: UNK
     Route: 065
     Dates: start: 20160120

REACTIONS (5)
  - Pyrexia [Recovered/Resolved]
  - Wrong technique in product usage process [Unknown]
  - Chills [Unknown]
  - Device issue [Unknown]
  - Syncope [Unknown]

NARRATIVE: CASE EVENT DATE: 201601
